FAERS Safety Report 9442090 (Version 1)
Quarter: 2013Q3

REPORT INFORMATION
  Report Type: Spontaneous
  Country: US (occurrence: None)
  Receive Date: 20130805
  Receipt Date: 20130805
  Transmission Date: 20140515
  Serious: Yes (Death)
  Sender: FDA-Public Use
  Company Number: None

PATIENT
  Age: 46 Year
  Sex: Female
  Weight: 58.24 kg

DRUGS (10)
  1. NERATINIB [Suspect]
     Indication: BREAST CANCER METASTATIC
     Route: 048
     Dates: start: 20130511, end: 20130708
  2. ALBUTEROL [Concomitant]
  3. PRISTIQ [Concomitant]
  4. SYNTHROID [Concomitant]
  5. POTASSIUM [Concomitant]
  6. HYDROCHLOROTIAZIDE [Concomitant]
  7. CYTOMEL [Concomitant]
  8. MEGACE ES [Concomitant]
  9. NASONEX [Concomitant]
  10. LOMOTIL [Concomitant]

REACTIONS (6)
  - Breast cancer metastatic [None]
  - Malignant neoplasm progression [None]
  - Dyspnoea [None]
  - General physical health deterioration [None]
  - Condition aggravated [None]
  - Cough [None]
